FAERS Safety Report 12326553 (Version 2)
Quarter: 2016Q2

REPORT INFORMATION
  Report Type: Report from Study
  Country: IT (occurrence: IT)
  Receive Date: 20160503
  Receipt Date: 20160531
  Transmission Date: 20160815
  Serious: Yes (Other)
  Sender: FDA-Public Use
  Company Number: IT-ROCHE-1750244

PATIENT
  Sex: Female

DRUGS (1)
  1. AVASTIN [Suspect]
     Active Substance: BEVACIZUMAB
     Indication: OVARIAN NEOPLASM
     Dosage: 1 X 400 MG VIAL OF CONC FOR SOLUTION FOR INF.
     Route: 042

REACTIONS (2)
  - Leukopenia [Unknown]
  - Fibromyalgia [Unknown]
